FAERS Safety Report 14578978 (Version 2)
Quarter: 2018Q1

REPORT INFORMATION
  Report Type: Spontaneous
  Country: US (occurrence: US)
  Receive Date: 20180227
  Receipt Date: 20180301
  Transmission Date: 20180509
  Serious: Yes (Hospitalization)
  Sender: FDA-Public Use
  Company Number: US-FRESENIUS MEDICAL CARE RENAL THERAPIES GROUP-FMC-1802-000374

PATIENT
  Sex: Female
  Weight: 118.04 kg

DRUGS (10)
  1. DELFLEX [Suspect]
     Active Substance: CALCIUM CHLORIDE\DEXTROSE\MAGNESIUM CHLORIDE\SODIUM CHLORIDE\SODIUM LACTATE
     Indication: END STAGE RENAL DISEASE
     Route: 033
  2. ATORVASTATIN [Concomitant]
     Active Substance: ATORVASTATIN
  3. LOSARTAN. [Concomitant]
     Active Substance: LOSARTAN
  4. HUMALIN [Concomitant]
     Active Substance: INSULIN NOS
  5. ALLOPURINOL. [Concomitant]
     Active Substance: ALLOPURINOL
  6. METOPROLOL TARTRATE. [Concomitant]
     Active Substance: METOPROLOL TARTRATE
  7. NISOLDIPINE. [Concomitant]
     Active Substance: NISOLDIPINE
  8. CLONIDINE. [Concomitant]
     Active Substance: CLONIDINE
  9. SPIRONOLACTONE. [Concomitant]
     Active Substance: SPIRONOLACTONE
  10. SODIUM BICARB [Concomitant]
     Active Substance: SODIUM BICARBONATE

REACTIONS (1)
  - Cerebrovascular accident [Unknown]
